FAERS Safety Report 17917831 (Version 4)
Quarter: 2021Q3

REPORT INFORMATION
  Report Type: Spontaneous
  Country: US (occurrence: US)
  Receive Date: 20200619
  Receipt Date: 20210917
  Transmission Date: 20211014
  Serious: Yes (Other)
  Sender: FDA-Public Use
  Company Number: US-JNJFOC-20200616280

PATIENT
  Age: 4 Decade
  Sex: Female

DRUGS (65)
  1. PHENAZOPYRIDINE. [Concomitant]
     Active Substance: PHENAZOPYRIDINE
     Indication: ANALGESIC THERAPY
     Dates: start: 201411
  2. DURAGESIC [Concomitant]
     Active Substance: FENTANYL
     Indication: PAIN MANAGEMENT
     Dates: start: 2000, end: 2009
  3. PREDNISONE. [Concomitant]
     Active Substance: PREDNISONE
     Dates: start: 201701
  4. FUROSEMIDE. [Concomitant]
     Active Substance: FUROSEMIDE
     Dates: start: 201901, end: 201905
  5. LINZESS [Concomitant]
     Active Substance: LINACLOTIDE
     Dates: start: 201908, end: 201908
  6. TIZANIDINE. [Concomitant]
     Active Substance: TIZANIDINE
     Dates: start: 201103, end: 201107
  7. FERROUS [IRON] [Concomitant]
     Active Substance: IRON
     Dates: start: 201201, end: 201307
  8. ELMIRON [Suspect]
     Active Substance: PENTOSAN POLYSULFATE SODIUM
     Route: 048
     Dates: end: 2019
  9. ROPINIROLE. [Concomitant]
     Active Substance: ROPINIROLE
     Indication: PAIN MANAGEMENT
     Dates: start: 200907
  10. ELMIRON [Suspect]
     Active Substance: PENTOSAN POLYSULFATE SODIUM
     Indication: CYSTITIS INTERSTITIAL
     Route: 048
     Dates: start: 200305, end: 201808
  11. HYOSCYAMINE. [Concomitant]
     Active Substance: HYOSCYAMINE
     Dates: start: 201711, end: 201910
  12. METHADONE [Concomitant]
     Active Substance: METHADONE HYDROCHLORIDE
     Dates: start: 201307, end: 202009
  13. PREDNISONE. [Concomitant]
     Active Substance: PREDNISONE
     Dates: start: 201002, end: 201106
  14. LISINOPRIL. [Concomitant]
     Active Substance: LISINOPRIL
     Dates: start: 201905
  15. NORLYDA [Concomitant]
     Active Substance: NORETHINDRONE
     Indication: CONTRACEPTION
     Dates: start: 202003, end: 202007
  16. HYDROXYZINE PAMOATE. [Concomitant]
     Active Substance: HYDROXYZINE PAMOATE
     Indication: ANTIALLERGIC THERAPY
     Dates: start: 200906, end: 201502
  17. HYOSCYAMINE. [Concomitant]
     Active Substance: HYOSCYAMINE
     Dates: start: 201503, end: 201512
  18. PHENAZOPYRIDINE. [Concomitant]
     Active Substance: PHENAZOPYRIDINE
     Indication: CYSTITIS INTERSTITIAL
     Dates: start: 2001, end: 201411
  19. CEVIMELINE. [Concomitant]
     Active Substance: CEVIMELINE
     Dates: start: 201805, end: 201904
  20. CELEBREX [Concomitant]
     Active Substance: CELECOXIB
     Indication: PAIN MANAGEMENT
     Dates: start: 200904, end: 201211
  21. SPIRONOLACTONE. [Concomitant]
     Active Substance: SPIRONOLACTONE
     Dates: start: 201204, end: 201310
  22. FERROUS [IRON] [Concomitant]
     Active Substance: IRON
     Dates: start: 201307, end: 201409
  23. CYCLOBENZAPRINE. [Concomitant]
     Active Substance: CYCLOBENZAPRINE
     Dates: start: 1999, end: 201801
  24. CARISOPRODOL. [Concomitant]
     Active Substance: CARISOPRODOL
     Indication: PAIN MANAGEMENT
     Dates: start: 201201
  25. HYOSCYAMINE. [Concomitant]
     Active Substance: HYOSCYAMINE
     Indication: FREQUENT BOWEL MOVEMENTS
     Dosage: ORALLY DISINTEGRATING TABLETS (ODT)
     Dates: start: 201204, end: 201209
  26. PANTOPRAZOLE [Concomitant]
     Active Substance: PANTOPRAZOLE
     Dates: start: 201810, end: 201902
  27. METHADONE [Concomitant]
     Active Substance: METHADONE HYDROCHLORIDE
     Indication: PAIN MANAGEMENT
     Dates: start: 200908
  28. PREDNISONE. [Concomitant]
     Active Substance: PREDNISONE
     Indication: INFLAMMATION
     Dates: start: 2009
  29. PREDNISONE. [Concomitant]
     Active Substance: PREDNISONE
     Dates: start: 201201, end: 201209
  30. HYDROXYCHLOROQUINE [Concomitant]
     Active Substance: HYDROXYCHLOROQUINE
     Indication: SYSTEMIC LUPUS ERYTHEMATOSUS
     Dates: start: 201401, end: 202005
  31. LINZESS [Concomitant]
     Active Substance: LINACLOTIDE
     Indication: GASTROINTESTINAL DISORDER
     Dates: start: 201904, end: 201904
  32. HYDROXYZINE HCL [Concomitant]
     Active Substance: HYDROXYZINE HYDROCHLORIDE
     Indication: ANTIALLERGIC THERAPY
     Dates: start: 201901, end: 201912
  33. FERROUS [IRON] [Concomitant]
     Active Substance: IRON
     Dates: start: 201501, end: 201501
  34. HYDROXYZINE PAMOATE. [Concomitant]
     Active Substance: HYDROXYZINE PAMOATE
     Dates: start: 201411, end: 202009
  35. CYCLOBENZAPRINE. [Concomitant]
     Active Substance: CYCLOBENZAPRINE
     Indication: PAIN MANAGEMENT
     Dates: start: 1998
  36. HYOSCYAMINE. [Concomitant]
     Active Substance: HYOSCYAMINE
     Dates: start: 201803
  37. HYDROCHLOROTHIAZIDE. [Concomitant]
     Active Substance: HYDROCHLOROTHIAZIDE
     Dates: start: 201701
  38. HYDROCHLOROTHIAZIDE. [Concomitant]
     Active Substance: HYDROCHLOROTHIAZIDE
     Dates: start: 201006, end: 201009
  39. PANTOPRAZOLE [Concomitant]
     Active Substance: PANTOPRAZOLE
     Indication: IRRITABILITY
     Dates: start: 201104, end: 201104
  40. PANTOPRAZOLE [Concomitant]
     Active Substance: PANTOPRAZOLE
     Dates: start: 201606
  41. OXYCODONE [Concomitant]
     Active Substance: OXYCODONE
     Dates: start: 202005, end: 202009
  42. LISINOPRIL. [Concomitant]
     Active Substance: LISINOPRIL
     Indication: BLOOD PRESSURE MEASUREMENT
     Dates: start: 2016
  43. FUROSEMIDE. [Concomitant]
     Active Substance: FUROSEMIDE
     Indication: FLUID RETENTION
     Dates: start: 201904
  44. PROCTOZONE HC [Concomitant]
     Active Substance: HYDROCORTISONE
     Indication: INFLAMMATION
     Dates: start: 201901, end: 201905
  45. LYBREL [Concomitant]
     Active Substance: ETHINYL ESTRADIOL\LEVONORGESTREL
     Indication: CONTRACEPTION
     Dates: start: 201003, end: 201106
  46. HYDROCHLOROTHIAZIDE. [Concomitant]
     Active Substance: HYDROCHLOROTHIAZIDE
     Indication: BLOOD PRESSURE MEASUREMENT
     Dates: start: 201503, end: 201612
  47. LEVONORGESTREL. [Concomitant]
     Active Substance: LEVONORGESTREL
     Indication: CONTRACEPTION
     Dates: start: 2010
  48. LEVONORGESTREL. [Concomitant]
     Active Substance: LEVONORGESTREL
     Dates: start: 201101
  49. PANTOPRAZOLE [Concomitant]
     Active Substance: PANTOPRAZOLE
     Dates: start: 201211, end: 201501
  50. PANTOPRAZOLE [Concomitant]
     Active Substance: PANTOPRAZOLE
     Dates: start: 201206, end: 201210
  51. PANTOPRAZOLE [Concomitant]
     Active Substance: PANTOPRAZOLE
     Dates: start: 201502, end: 201606
  52. OXYCODONE [Concomitant]
     Active Substance: OXYCODONE
     Indication: PAIN MANAGEMENT
     Dates: start: 2000
  53. PREDNISONE. [Concomitant]
     Active Substance: PREDNISONE
     Dates: start: 201212, end: 201411
  54. PREDNISONE. [Concomitant]
     Active Substance: PREDNISONE
     Dates: start: 201403, end: 201612
  55. PREDNISONE. [Concomitant]
     Active Substance: PREDNISONE
     Dates: start: 201901, end: 201905
  56. LINZESS [Concomitant]
     Active Substance: LINACLOTIDE
     Dates: start: 201901, end: 201903
  57. HYDROXYZINE PAMOATE. [Concomitant]
     Active Substance: HYDROXYZINE PAMOATE
     Indication: CYSTITIS INTERSTITIAL
     Dates: start: 2001
  58. CARISOPRODOL. [Concomitant]
     Active Substance: CARISOPRODOL
     Dates: start: 201903, end: 202006
  59. HYDROCHLOROTHIAZIDE. [Concomitant]
     Active Substance: HYDROCHLOROTHIAZIDE
     Dates: start: 201306, end: 201412
  60. MACROBID [Concomitant]
     Active Substance: NITROFURANTOIN\NITROFURANTOIN MONOHYDRATE
     Indication: CYSTITIS INTERSTITIAL
     Dates: start: 2000, end: 2010
  61. CEVIMELINE. [Concomitant]
     Active Substance: CEVIMELINE
     Indication: DRY MOUTH
     Dates: start: 201603, end: 201711
  62. TRIAMTERENE AND HYDROCHLOROTHIAZID [Concomitant]
     Active Substance: HYDROCHLOROTHIAZIDE\TRIAMTERENE
     Indication: BLOOD PRESSURE MEASUREMENT
     Dosage: TRIAMTERENE 37.5MG/ HCTZ 25MG TABS
     Dates: start: 201101, end: 201201
  63. AMLODIPINE BESYLATE. [Concomitant]
     Active Substance: AMLODIPINE BESYLATE
     Indication: BLOOD PRESSURE MEASUREMENT
  64. SPIRONOLACTONE. [Concomitant]
     Active Substance: SPIRONOLACTONE
     Dates: start: 201212, end: 201303
  65. FERROUS [IRON] [Concomitant]
     Active Substance: IRON
     Indication: MINERAL SUPPLEMENTATION
     Dates: start: 201004, end: 201109

REACTIONS (6)
  - Off label use [Unknown]
  - Blindness [Unknown]
  - Macular degeneration [Not Recovered/Not Resolved]
  - Maculopathy [Unknown]
  - Product use issue [Unknown]
  - Age-related macular degeneration [Unknown]

NARRATIVE: CASE EVENT DATE: 2004
